FAERS Safety Report 7575074-X (Version None)
Quarter: 2011Q2

REPORT INFORMATION
  Report Type: 
  Country: None (occurrence: None)
  Receive Date: 20110627
  Receipt Date: 20110622
  Transmission Date: 20111010
  Serious: Yes (Death, Hospitalization, Other)
  Sender: FDA-Public Use
  Company Number: PHHY2011FR55005

PATIENT
  Sex: Female

DRUGS (7)
  1. NEORAL [Suspect]
     Dosage: UNK
     Dates: start: 20110426
  2. PREDNISOLONE [Concomitant]
     Dosage: 7.5 MG,
     Dates: start: 20090701
  3. LANTUS [Concomitant]
     Indication: TYPE 2 DIABETES MELLITUS
     Dosage: UNK
     Dates: start: 20030101
  4. ZESTRIL [Concomitant]
     Dosage: 5 MG, QD
  5. NEORAL [Suspect]
     Indication: IMMUNOSUPPRESSION
     Dosage: 100 MG, QD
     Dates: start: 20090702, end: 20110330
  6. CERTICAN [Concomitant]
     Dosage: 0.5 MG, BID
     Dates: start: 20090701
  7. LEVEMIR [Concomitant]
     Indication: TYPE 2 DIABETES MELLITUS
     Dosage: UNK
     Dates: start: 20030101

REACTIONS (11)
  - THROMBOCYTOPENIA [None]
  - RENAL FAILURE ACUTE [None]
  - ALTERED STATE OF CONSCIOUSNESS [None]
  - ANAEMIA [None]
  - RED BLOOD CELL SCHISTOCYTES PRESENT [None]
  - BREAST CANCER [None]
  - VOMITING [None]
  - HAEMOLYTIC URAEMIC SYNDROME [None]
  - DEHYDRATION [None]
  - HAEMOLYSIS [None]
  - HAPTOGLOBIN DECREASED [None]
